FAERS Safety Report 24124892 (Version 1)
Quarter: 2024Q3

REPORT INFORMATION
  Report Type: Report from Study
  Country: US (occurrence: US)
  Receive Date: 20240723
  Receipt Date: 20240723
  Transmission Date: 20241017
  Serious: Yes (Death, Other)
  Sender: CELLTRION
  Company Number: US-CELLTRION INC.-2024US014377

PATIENT

DRUGS (3)
  1. BEVACIZUMAB [Suspect]
     Active Substance: BEVACIZUMAB
     Indication: Vulval cancer
     Dosage: 15 MG/M2, EVERY 3 WEEKS
  2. CISPLATIN [Suspect]
     Active Substance: CISPLATIN
     Indication: Vulval cancer
     Dosage: 50 MG/M2
  3. PACLITAXEL [Suspect]
     Active Substance: PACLITAXEL
     Indication: Vulval cancer
     Dosage: 175 MG/M2

REACTIONS (2)
  - Sepsis [Fatal]
  - Drug effective for unapproved indication [Unknown]
